FAERS Safety Report 7639908-2 (Version None)
Quarter: 2011Q3

REPORT INFORMATION
  Report Type: 
  Country: None (occurrence: None)
  Receive Date: 20110727
  Receipt Date: 20110720
  Transmission Date: 20111222
  Serious: Yes (Other)
  Sender: FDA-Public Use
  Company Number: HR-B.I. PHARMACEUTICALS,INC./RIDGEFIELD-2011-AP-00388AP

PATIENT
  Sex: Male

DRUGS (3)
  1. CRESTOR [Suspect]
     Indication: HYPERCHOLESTEROLAEMIA
     Dates: start: 20100101
  2. AGGRENOX [Suspect]
     Dates: start: 20100101
  3. PREXANIL COMBI [Suspect]
     Indication: HYPERTENSION
     Dates: start: 20101201

REACTIONS (3)
  - GAIT DISTURBANCE [None]
  - DIZZINESS [None]
  - MYALGIA [None]
